FAERS Safety Report 5806525-6 (Version None)
Quarter: 2008Q3

REPORT INFORMATION
  Report Type: 
  Country: None (occurrence: None)
  Receive Date: 20080710
  Receipt Date: 20080709
  Transmission Date: 20090109
  Serious: Yes (Hospitalization)
  Sender: FDA-Public Use
  Company Number: US-BOEHRINGER INGELHEIM GMBH, GERMANY-2008-BP-09879RO

PATIENT
  Sex: Male
  Weight: 75 kg

DRUGS (3)
  1. LITHIUM CARBONATE [Suspect]
     Route: 048
     Dates: start: 20000422, end: 20030915
  2. LITHIUM CARBONATE [Suspect]
     Route: 048
     Dates: start: 20030915
  3. MELLARIL [Concomitant]
     Dates: start: 19970414

REACTIONS (3)
  - ANTIPSYCHOTIC DRUG LEVEL BELOW THERAPEUTIC [None]
  - PHARMACEUTICAL PRODUCT COMPLAINT [None]
  - PSYCHIATRIC SYMPTOM [None]
